FAERS Safety Report 25213186 (Version 1)
Quarter: 2025Q2

REPORT INFORMATION
  Report Type: Spontaneous
  Country: GB (occurrence: GB)
  Receive Date: 20250418
  Receipt Date: 20250418
  Transmission Date: 20250717
  Serious: Yes (Other)
  Sender: AUROBINDO
  Company Number: GB-MHRA-MED-202504031105433800-VWMFC

PATIENT
  Age: 49 Year
  Sex: Female
  Weight: 70 kg

DRUGS (1)
  1. NITROFURANTOIN [Suspect]
     Active Substance: NITROFURANTOIN
     Indication: Adverse drug reaction
     Dosage: 100 MILLIGRAM, TWO TIMES A DAY (100MG TWICE A DAY)
     Route: 065
     Dates: start: 20250401

REACTIONS (3)
  - Rash erythematous [Not Recovered/Not Resolved]
  - Myalgia [Recovered/Resolved]
  - Medication error [Unknown]

NARRATIVE: CASE EVENT DATE: 20250402
